FAERS Safety Report 6370633-4 (Version None)
Quarter: 2009Q3

REPORT INFORMATION
  Report Type: 
  Country: None (occurrence: None)
  Receive Date: 20090923
  Receipt Date: 20090909
  Transmission Date: 20100115
  Serious: Yes (Hospitalization)
  Sender: FDA-Public Use
  Company Number: IT-MYLANLABS-2009S1015835

PATIENT
  Age: 28 Year
  Sex: Male

DRUGS (2)
  1. CARBAMAZEPINE [Suspect]
     Indication: DRUG USE FOR UNKNOWN INDICATION
     Dosage: DPSAGE NOT STATED
  2. HALOPERIDOL [Suspect]
     Indication: PSYCHOTIC BEHAVIOUR
     Dosage: DOSAGE NOT STATED

REACTIONS (1)
  - INTUSSUSCEPTION [None]
